FAERS Safety Report 8532168-X (Version None)
Quarter: 2012Q3

REPORT INFORMATION
  Report Type: 
  Country: None (occurrence: None)
  Receive Date: 20120723
  Receipt Date: 20120718
  Transmission Date: 20120928
  Serious: Yes (Other)
  Sender: FDA-Public Use
  Company Number: JP-GLAXOSMITHKLINE-B0802947A

PATIENT
  Sex: Female

DRUGS (3)
  1. ABILIFY [Concomitant]
     Dosage: 3MG PER DAY
     Route: 048
  2. CYMBALTA [Concomitant]
     Dosage: 60MG PER DAY
     Route: 048
  3. PAXIL [Suspect]
     Indication: DEPRESSION
     Dosage: 20MG PER DAY
     Route: 048

REACTIONS (3)
  - HOMICIDE [None]
  - ALCOHOL INTERACTION [None]
  - AGITATION [None]
